FAERS Safety Report 17131254 (Version 3)
Quarter: 2020Q1

REPORT INFORMATION
  Report Type: Spontaneous
  Country: AR (occurrence: AR)
  Receive Date: 20191209
  Receipt Date: 20200311
  Transmission Date: 20200409
  Serious: Yes (Hospitalization, Other)
  Sender: FDA-Public Use
  Company Number: AR-TAKEDA-2019TUS068533

PATIENT
  Age: 51 Year
  Sex: Male

DRUGS (1)
  1. PONATINIB [Suspect]
     Active Substance: PONATINIB
     Indication: CHRONIC MYELOID LEUKAEMIA
     Dosage: 30 MILLIGRAM, QD
     Route: 048
     Dates: start: 20191030, end: 20191122

REACTIONS (8)
  - Asthenia [Recovering/Resolving]
  - Arthralgia [Recovering/Resolving]
  - Blast crisis in myelogenous leukaemia [Unknown]
  - Transformation to acute myeloid leukaemia [Unknown]
  - Pyrexia [Recovered/Resolved]
  - Contusion [Recovering/Resolving]
  - Erythema [Recovering/Resolving]
  - Myalgia [Recovering/Resolving]

NARRATIVE: CASE EVENT DATE: 20191106
